FAERS Safety Report 4505897-2 (Version None)
Quarter: 2004Q4

REPORT INFORMATION
  Report Type: 
  Country: None (occurrence: None)
  Receive Date: 20041025
  Receipt Date: 20040412
  Transmission Date: 20050328
  Serious: Yes (Life-Threatening, Hospitalization)
  Sender: FDA-Public Use
  Company Number: US-JNJFOC-20040300742

PATIENT
  Age: 76 Year
  Sex: Female
  Weight: 69.8539 kg

DRUGS (10)
  1. REMICADE [Suspect]
     Indication: RHEUMATOID ARTHRITIS
     Dosage: 400 MG INTRAVENOUS
     Route: 042
     Dates: start: 20010718
  2. ARAVA [Concomitant]
  3. PREDNISONE [Concomitant]
  4. PRILSEC (OMEPRAZOLE) [Concomitant]
  5. ATACAND [Concomitant]
  6. CARDIZEM [Concomitant]
  7. FOSAMAX [Concomitant]
  8. MOBIC [Concomitant]
  9. HYTRIN [Concomitant]
  10. CALCIUM(CALCIUM) [Concomitant]

REACTIONS (2)
  - DEEP VEIN THROMBOSIS [None]
  - PULMONARY EMBOLISM [None]
